FAERS Safety Report 21625521 (Version 1)
Quarter: 2022Q4

REPORT INFORMATION
  Report Type: Report from Study
  Country: US (occurrence: US)
  Receive Date: 20221122
  Receipt Date: 20221122
  Transmission Date: 20230112
  Serious: No
  Sender: FDA-Public Use
  Company Number: US-ABBVIE-4159678

PATIENT
  Age: 49 Year
  Sex: Female

DRUGS (1)
  1. MAVYRET [Suspect]
     Active Substance: GLECAPREVIR\PIBRENTASVIR
     Indication: Product used for unknown indication
     Route: 048
     Dates: start: 20220929, end: 20221006

REACTIONS (3)
  - Nausea [Recovered/Resolved]
  - Pruritus [Unknown]
  - Feeling jittery [Unknown]

NARRATIVE: CASE EVENT DATE: 20220929
